FAERS Safety Report 10061614 (Version 1)
Quarter: 2014Q2

REPORT INFORMATION
  Report Type: Spontaneous
  Country: GB (occurrence: GB)
  Receive Date: 20140407
  Receipt Date: 20140407
  Transmission Date: 20141212
  Serious: Yes (Life-Threatening, Other)
  Sender: FDA-Public Use
  Company Number: GB-SA-2014SA039596

PATIENT
  Age: 40 Year
  Sex: Female
  Weight: 66.67 kg

DRUGS (2)
  1. TELFAST [Suspect]
     Indication: HYPERSENSITIVITY
     Route: 048
     Dates: start: 20130401, end: 20130601
  2. SERTRALINE [Concomitant]

REACTIONS (1)
  - Major depression [Recovered/Resolved]
